FAERS Safety Report 7800301-0 (Version None)
Quarter: 2011Q4

REPORT INFORMATION
  Report Type: 
  Country: None (occurrence: None)
  Receive Date: 20111006
  Receipt Date: 20110928
  Transmission Date: 20120403
  Serious: Yes (Other)
  Sender: FDA-Public Use
  Company Number: DE-GLAXOSMITHKLINE-D0072815A

PATIENT
  Age: 58 Year
  Sex: Female

DRUGS (1)
  1. BUPROPION HYDROCHLORIDE [Suspect]
     Dosage: 150MG UNKNOWN
     Route: 048
     Dates: start: 20100101

REACTIONS (4)
  - DEPRESSED MOOD [None]
  - WRONG TECHNIQUE IN DRUG USAGE PROCESS [None]
  - SUICIDAL IDEATION [None]
  - DRUG DISPENSING ERROR [None]
